FAERS Safety Report 25256396 (Version 1)
Quarter: 2025Q2

REPORT INFORMATION
  Report Type: Spontaneous
  Country: US (occurrence: None)
  Receive Date: 20250430
  Receipt Date: 20250430
  Transmission Date: 20250717
  Serious: Yes (Hospitalization)
  Sender: FDA-CTU
  Company Number: None

PATIENT
  Age: 59 Year
  Sex: Female

DRUGS (1)
  1. CAPECITABINE [Suspect]
     Active Substance: CAPECITABINE
     Indication: Rectal cancer
     Dosage: 1150MG BID

REACTIONS (8)
  - Blood pressure increased [None]
  - Abdominal pain upper [None]
  - Nausea [None]
  - Vomiting [None]
  - Fall [None]
  - Fatigue [None]
  - Pain [None]
  - Product dose omission in error [None]
